FAERS Safety Report 11438136 (Version 1)
Quarter: 2015Q3

REPORT INFORMATION
  Report Type: Spontaneous
  Country: PE (occurrence: PE)
  Receive Date: 20150901
  Receipt Date: 20150901
  Transmission Date: 20151125
  Serious: Yes (Other)
  Sender: FDA-Public Use
  Company Number: PE-PFIZER INC-2015242894

PATIENT
  Age: 72 Year
  Sex: Female

DRUGS (1)
  1. XALATAN [Suspect]
     Active Substance: LATANOPROST
     Dosage: UNK
     Route: 047

REACTIONS (4)
  - Vaginal prolapse [Unknown]
  - Urinary incontinence [Unknown]
  - Malaise [Not Recovered/Not Resolved]
  - Eye pain [Not Recovered/Not Resolved]
